FAERS Safety Report 5701833-1 (Version None)
Quarter: 2008Q2

REPORT INFORMATION
  Report Type: 
  Country: None (occurrence: None)
  Receive Date: 20080408
  Receipt Date: 20080225
  Transmission Date: 20081010
  Serious: Yes (Death, Life-Threatening, Hospitalization, Other)
  Sender: FDA-Public Use
  Company Number: 2008AL002052

PATIENT
  Age: 79 Year
  Sex: Female

DRUGS (9)
  1. METFORMIN HYDROCHLORIDE [Suspect]
     Dates: end: 20080212
  2. AMLODIPINE [Concomitant]
  3. LANSOPRAZOLE [Concomitant]
  4. SIMVASTATIN [Concomitant]
  5. QUININE [Concomitant]
  6. AMITRIPTYLINE HCL [Concomitant]
  7. FUROSEMIDE [Concomitant]
  8. NOVOLOG MIX 70/30 [Concomitant]
  9. ENALAPRIL MALEATE [Concomitant]

REACTIONS (3)
  - METABOLIC ACIDOSIS [None]
  - MULTI-ORGAN FAILURE [None]
  - PERIPHERAL ISCHAEMIA [None]
